FAERS Safety Report 25645287 (Version 1)
Quarter: 2025Q3

REPORT INFORMATION
  Report Type: Spontaneous
  Country: CA (occurrence: CA)
  Receive Date: 20250805
  Receipt Date: 20250805
  Transmission Date: 20251021
  Serious: Yes (Other)
  Sender: PFIZER
  Company Number: CA-PFIZER INC-202500085485

PATIENT
  Age: 89 Year
  Sex: Male

DRUGS (7)
  1. VYNDAMAX [Suspect]
     Active Substance: TAFAMIDIS
     Indication: Cardiac amyloidosis
     Dosage: 61 MG, 1X/DAY
     Route: 048
     Dates: start: 20250331
  2. AMIODARONE [Concomitant]
     Active Substance: AMIODARONE
     Dosage: 200 MG, DAILY
     Route: 048
  3. APIXABAN [Concomitant]
     Active Substance: APIXABAN
     Dosage: 5 MG, 2X/DAY
     Route: 048
  4. FUROSEMIDE [Concomitant]
     Active Substance: FUROSEMIDE
     Dosage: 40 MG, DAILY
     Route: 048
  5. LEVOTHYROXINE [Concomitant]
     Active Substance: LEVOTHYROXINE
     Dosage: 100 UG, DAILY
     Route: 048
  6. MINERALS\VITAMINS [Concomitant]
     Active Substance: MINERALS\VITAMINS
     Dosage: 1 TAB, DAILY
     Route: 048
  7. VITAMIN B COMPLEX [Concomitant]
     Active Substance: CYANOCOBALAMIN\DEXPANTHENOL\NIACINAMIDE\PYRIDOXINE HYDROCHLORIDE\RIBOFLAVIN 5^-PHOSPHATE SODIUM\THIA
     Dosage: 1 DF, DAILY
     Route: 048

REACTIONS (6)
  - Chest injury [Unknown]
  - Constipation [Unknown]
  - Vision blurred [Unknown]
  - Dizziness [Unknown]
  - Dyspnoea [Unknown]
  - Sleep disorder [Unknown]

NARRATIVE: CASE EVENT DATE: 20250101
